FAERS Safety Report 5283729-5 (Version None)
Quarter: 2007Q2

REPORT INFORMATION
  Report Type: 
  Country: None (occurrence: None)
  Receive Date: 20070402
  Receipt Date: 20070323
  Transmission Date: 20071010
  Serious: Yes (Hospitalization)
  Sender: FDA-Public Use
  Company Number: JP-ABBOTT-07P-087-0362826-00

PATIENT
  Age: 85 Year
  Sex: Male
  Weight: 46 kg

DRUGS (6)
  1. CLARITHROMYCIN [Suspect]
     Indication: BRONCHITIS
     Route: 048
     Dates: start: 20061125, end: 20061127
  2. WARFARIN POTASSIUM [Concomitant]
     Indication: ATRIAL FIBRILLATION
     Route: 048
     Dates: start: 20061116
  3. FUROSEMIDE [Concomitant]
     Indication: CARDIAC FAILURE
     Route: 048
     Dates: start: 20061116, end: 20061124
  4. FUROSEMIDE [Concomitant]
     Route: 048
     Dates: start: 20061125
  5. PILSICAINIDE HYDROCHLORIDE [Concomitant]
     Indication: ATRIAL FIBRILLATION
     Route: 048
     Dates: start: 20061122
  6. PIPERACILLIN SODIUM [Concomitant]
     Indication: CHRONIC OBSTRUCTIVE PULMONARY DISEASE
     Route: 042
     Dates: start: 20061111, end: 20061124

REACTIONS (1)
  - LIVER DISORDER [None]
